FAERS Safety Report 7994482-6 (Version None)
Quarter: 2011Q4

REPORT INFORMATION
  Report Type: 
  Country: None (occurrence: None)
  Receive Date: 20111220
  Receipt Date: 20111215
  Transmission Date: 20120403
  Serious: Yes (Other)
  Sender: FDA-Public Use
  Company Number: ES-SANOFI-AVENTIS-2011SA082477

PATIENT
  Age: 78 Year
  Sex: Female

DRUGS (1)
  1. ELORGAN [Suspect]
     Route: 048
     Dates: start: 20110101

REACTIONS (2)
  - ABDOMINAL PAIN UPPER [None]
  - APHTHOUS STOMATITIS [None]
